FAERS Safety Report 9452308 (Version 2)
Quarter: 2013Q3

REPORT INFORMATION
  Report Type: Spontaneous
  Country: US (occurrence: US)
  Receive Date: 20130812
  Receipt Date: 20130903
  Transmission Date: 20140515
  Serious: No
  Sender: FDA-Public Use
  Company Number: US-009507513-1308USA002767

PATIENT
  Sex: Female
  Weight: 63.39 kg

DRUGS (1)
  1. IMPLANON [Suspect]
     Indication: CONTRACEPTION
     Dosage: 1 DF, UNK
     Route: 059
     Dates: start: 2007

REACTIONS (4)
  - Anovulatory cycle [Not Recovered/Not Resolved]
  - Menstruation delayed [Recovered/Resolved]
  - Medical device complication [Unknown]
  - Medical device complication [Not Recovered/Not Resolved]
